FAERS Safety Report 6374372-5 (Version None)
Quarter: 2009Q3

REPORT INFORMATION
  Report Type: 
  Country: None (occurrence: None)
  Receive Date: 20090924
  Receipt Date: 20090415
  Transmission Date: 20100115
  Serious: No
  Sender: FDA-Public Use
  Company Number: A0778931A

PATIENT
  Age: 61 Year
  Sex: Male

DRUGS (4)
  1. EPZICOM [Suspect]
     Indication: DRUG USE FOR UNKNOWN INDICATION
     Dosage: 1TAB PER DAY
     Route: 048
     Dates: start: 20090328
  2. INVIRASE [Concomitant]
  3. LOMOTIL [Concomitant]
  4. BLOOD PRESSURE MEDICATION [Concomitant]

REACTIONS (4)
  - ABDOMINAL DISCOMFORT [None]
  - INSOMNIA [None]
  - MOOD SWINGS [None]
  - MUSCULAR WEAKNESS [None]
